FAERS Safety Report 5328463-8 (Version None)
Quarter: 2007Q2

REPORT INFORMATION
  Report Type: 
  Country: None (occurrence: None)
  Receive Date: 20070518
  Receipt Date: 20070508
  Transmission Date: 20071010
  Serious: Yes (Hospitalization)
  Sender: FDA-Public Use
  Company Number: DE-AMGEN-UK224372

PATIENT
  Sex: Male

DRUGS (2)
  1. NEUPOGEN [Suspect]
     Indication: PRE-EXISTING DISEASE
     Route: 065
  2. GLEEVEC [Concomitant]
     Route: 065

REACTIONS (2)
  - BACK PAIN [None]
  - BLOOD LACTATE DEHYDROGENASE INCREASED [None]
